FAERS Safety Report 6054522-0 (Version None)
Quarter: 2009Q1

REPORT INFORMATION
  Report Type: 
  Country: None (occurrence: None)
  Receive Date: 20090127
  Receipt Date: 20090120
  Transmission Date: 20090719
  Serious: Yes (Death)
  Sender: FDA-Public Use
  Company Number: PHHY2009CA01712

PATIENT
  Sex: Male

DRUGS (4)
  1. EXELON [Suspect]
     Indication: DEMENTIA ALZHEIMER'S TYPE
     Dosage: 4.5MG
     Route: 048
     Dates: start: 20080318, end: 20081001
  2. SYNTHROID [Concomitant]
     Dosage: 50 UG, QD
  3. NEXIUM [Concomitant]
     Dosage: 40 MG, BID
  4. HYDROCHLOROTHIAZIDE [Concomitant]

REACTIONS (1)
  - ACUTE CORONARY SYNDROME [None]
